FAERS Safety Report 23651861 (Version 1)
Quarter: 2024Q1

REPORT INFORMATION
  Report Type: Spontaneous
  Country: CN (occurrence: CN)
  Receive Date: 20240320
  Receipt Date: 20240320
  Transmission Date: 20240410
  Serious: Yes (Other)
  Sender: FDA-Public Use
  Company Number: CN-Bio-Thera Solutions, Ltd.-2154565

PATIENT
  Age: 53 Year
  Sex: Male
  Weight: 55 kg

DRUGS (2)
  1. AVZIVI [Suspect]
     Active Substance: BEVACIZUMAB-TNJN
     Route: 041
     Dates: start: 20240125, end: 20240125
  2. CAMRELIZUMAB [Concomitant]
     Active Substance: CAMRELIZUMAB
     Route: 041
     Dates: start: 20240226, end: 20240226

REACTIONS (4)
  - White blood cell count decreased [Not Recovered/Not Resolved]
  - Asthenia [Unknown]
  - Liver injury [Not Recovered/Not Resolved]
  - Myelosuppression [Not Recovered/Not Resolved]

NARRATIVE: CASE EVENT DATE: 20240101
